FAERS Safety Report 8816438 (Version 2)
Quarter: 2012Q4

REPORT INFORMATION
  Report Type: Spontaneous
  Country: IT (occurrence: None)
  Receive Date: 20120927
  Receipt Date: 20121003
  Transmission Date: 20130627
  Serious: Yes (Other)
  Sender: FDA-Public Use
  Company Number: 2012AP003131

PATIENT
  Age: 27 Year
  Sex: Male

DRUGS (1)
  1. LEVOFLOXACIN (LEVOFLOXACIN) [Suspect]
     Indication: FEVER

REACTIONS (8)
  - Drug-induced liver injury [None]
  - Hepatomegaly [None]
  - Aspartate aminotransferase increased [None]
  - Alanine aminotransferase increased [None]
  - Splenomegaly [None]
  - Chromaturia [None]
  - Nausea [None]
  - Hepatocellular injury [None]
